FAERS Safety Report 6386097-0 (Version None)
Quarter: 2009Q4

REPORT INFORMATION
  Report Type: 
  Country: None (occurrence: None)
  Receive Date: 20091002
  Receipt Date: 20090206
  Transmission Date: 20100525
  Serious: No
  Sender: FDA-Public Use
  Company Number: US-ASTRAZENECA-2009UW00401

PATIENT
  Age: 61 Year
  Sex: Female
  Weight: 86.2 kg

DRUGS (4)
  1. ARIMIDEX [Suspect]
     Indication: BREAST CANCER
     Dosage: UNKNOWN
     Route: 048
     Dates: start: 20070301, end: 20081211
  2. REQUIP [Concomitant]
  3. ADVIL PM [Concomitant]
  4. MULTI-VITAMINS [Concomitant]

REACTIONS (2)
  - BONE PAIN [None]
  - MUSCLE SPASMS [None]
